FAERS Safety Report 6276473-9 (Version None)
Quarter: 2009Q3

REPORT INFORMATION
  Report Type: 
  Country: None (occurrence: None)
  Receive Date: 20090720
  Receipt Date: 20080708
  Transmission Date: 20100115
  Serious: Yes (Death)
  Sender: FDA-Public Use
  Company Number: USA-2008-0033848

PATIENT
  Age: 53 Year
  Sex: Male

DRUGS (2)
  1. MS CONTIN [Suspect]
     Indication: PAIN
     Dosage: 120 MG, DAILY, ORAL
     Route: 048
  2. ATIVAN [Concomitant]

REACTIONS (2)
  - ACCIDENTAL OVERDOSE [None]
  - WRONG TECHNIQUE IN DRUG USAGE PROCESS [None]
